FAERS Safety Report 8081457-4 (Version None)
Quarter: 2012Q1

REPORT INFORMATION
  Report Type: 
  Country: None (occurrence: None)
  Receive Date: 20120130
  Receipt Date: 20120126
  Transmission Date: 20120608
  Serious: Yes (Other)
  Sender: FDA-Public Use
  Company Number: US-PFIZER INC-2012022190

PATIENT
  Sex: Female
  Weight: 131.52 kg

DRUGS (2)
  1. CHANTIX [Suspect]
     Indication: SMOKING CESSATION THERAPY
     Dosage: 0.5 MG, 1X/DAY
     Route: 048
     Dates: start: 20100101
  2. CHANTIX [Suspect]
     Dosage: UNK
     Route: 048
     Dates: end: 20101101

REACTIONS (4)
  - VOMITING [None]
  - NAUSEA [None]
  - DRUG INTOLERANCE [None]
  - LIVER DISORDER [None]
